FAERS Safety Report 21580581 (Version 1)
Quarter: 2022Q4

REPORT INFORMATION
  Report Type: Spontaneous
  Country: JP (occurrence: JP)
  Receive Date: 20221111
  Receipt Date: 20221111
  Transmission Date: 20230113
  Serious: Yes (Other)
  Sender: FDA-Public Use
  Company Number: JP-002147023-NVSJ2022JP100628

PATIENT
  Age: 65 Year
  Sex: Male

DRUGS (1)
  1. IMATINIB MESYLATE [Suspect]
     Active Substance: IMATINIB MESYLATE
     Indication: Chronic myeloid leukaemia
     Dosage: UNK
     Route: 048
     Dates: start: 2009, end: 201510

REACTIONS (4)
  - Type 2 diabetes mellitus [Unknown]
  - Gastric ulcer haemorrhage [Unknown]
  - Cholelithiasis [Unknown]
  - Intentional dose omission [Unknown]

NARRATIVE: CASE EVENT DATE: 20151001
